FAERS Safety Report 5782288-8 (Version None)
Quarter: 2008Q2

REPORT INFORMATION
  Report Type: 
  Country: None (occurrence: None)
  Receive Date: 20080623
  Receipt Date: 20071206
  Transmission Date: 20081010
  Serious: No
  Sender: FDA-Public Use
  Company Number: US-BOEHRINGER INGELHEIM GMBH, GERMANY-2007-BP-11493BP

PATIENT
  Sex: Male
  Weight: 95 kg

DRUGS (5)
  1. MIRAPEX [Suspect]
     Indication: PARKINSON'S DISEASE
     Dates: start: 20050401, end: 20070401
  2. LIPITOR [Concomitant]
     Indication: BLOOD CHOLESTEROL INCREASED
  3. XANAX [Concomitant]
     Indication: ANXIETY
     Dates: start: 19950101
  4. MULTI-VITAMIN [Concomitant]
  5. ASPIRIN [Concomitant]

REACTIONS (6)
  - ANXIETY [None]
  - DEPRESSION [None]
  - EMOTIONAL DISTRESS [None]
  - PAIN [None]
  - PATHOLOGICAL GAMBLING [None]
  - STRESS [None]
